FAERS Safety Report 7301918-2 (Version None)
Quarter: 2011Q1

REPORT INFORMATION
  Report Type: 
  Country: None (occurrence: None)
  Receive Date: 20110218
  Receipt Date: 20110209
  Transmission Date: 20110831
  Serious: Yes (Life-Threatening)
  Sender: FDA-Public Use
  Company Number: FI-ROCHE-759101

PATIENT
  Sex: Female

DRUGS (1)
  1. XELODA [Suspect]
     Dosage: DOSE: 50-100 TABLETS
     Route: 048
     Dates: start: 20110208, end: 20110209

REACTIONS (1)
  - SUICIDE ATTEMPT [None]
